FAERS Safety Report 5384405-0 (Version None)
Quarter: 2007Q3

REPORT INFORMATION
  Report Type: 
  Country: None (occurrence: None)
  Receive Date: 20070711
  Receipt Date: 20070215
  Transmission Date: 20080115
  Serious: Yes (Hospitalization)
  Sender: FDA-Public Use
  Company Number: US-AMGEN-US210631

PATIENT
  Sex: Female
  Weight: 49.5 kg

DRUGS (9)
  1. KINERET [Suspect]
     Indication: RHEUMATOID ARTHRITIS
     Route: 058
     Dates: start: 20051101, end: 20061101
  2. METHOTREXATE [Concomitant]
     Dates: start: 20050101
  3. PLAQUENIL [Concomitant]
     Dates: start: 20050101
  4. KLONOPIN [Concomitant]
  5. TALWIN [Concomitant]
  6. RESTORIL [Concomitant]
  7. PROTONIX [Concomitant]
  8. CYMBALTA [Concomitant]
  9. SALAGEN [Concomitant]

REACTIONS (1)
  - PNEUMONIA [None]
